FAERS Safety Report 7092468-X (Version None)
Quarter: 2010Q4

REPORT INFORMATION
  Report Type: 
  Country: None (occurrence: None)
  Receive Date: 20101108
  Receipt Date: 20101108
  Transmission Date: 20110411
  Serious: Yes (Life-Threatening, Hospitalization, Other)
  Sender: FDA-Public Use
  Company Number: None

PATIENT
  Sex: Female
  Weight: 60.782 kg

DRUGS (1)
  1. PAXIL [Suspect]
     Dosage: 30MG EVERY DAY

REACTIONS (28)
  - ABDOMINAL PAIN UPPER [None]
  - ALOPECIA [None]
  - ANXIETY [None]
  - BONE PAIN [None]
  - CHEST PAIN [None]
  - CONFUSIONAL STATE [None]
  - COUGH [None]
  - DECREASED APPETITE [None]
  - DRY SKIN [None]
  - DYSPHAGIA [None]
  - HEADACHE [None]
  - INFECTION [None]
  - IRRITABILITY [None]
  - KNEE DEFORMITY [None]
  - MEMORY IMPAIRMENT [None]
  - MULTIPLE ALLERGIES [None]
  - MUSCLE TIGHTNESS [None]
  - NAUSEA [None]
  - NERVOUSNESS [None]
  - OROPHARYNGEAL PAIN [None]
  - PALPITATIONS [None]
  - PRURITUS [None]
  - RASH [None]
  - RHINORRHOEA [None]
  - SKIN DISCOLOURATION [None]
  - TOBACCO USER [None]
  - TREMOR [None]
  - WEIGHT DECREASED [None]
